FAERS Safety Report 9665067 (Version 1)
Quarter: 2013Q4

REPORT INFORMATION
  Report Type: Spontaneous
  Country: US (occurrence: US)
  Receive Date: 20131101
  Receipt Date: 20131101
  Transmission Date: 20140711
  Serious: No
  Sender: FDA-Public Use
  Company Number: US-009507513-1310USA003163

PATIENT
  Age: 64 Year
  Sex: Female

DRUGS (4)
  1. EMEND [Suspect]
     Indication: CHEMOTHERAPY
     Dosage: 125 MG, UNK
     Route: 048
     Dates: start: 201304
  2. EMEND [Suspect]
     Indication: CHEMOTHERAPY
     Dosage: 80 MG, UNK
  3. REGLAN [Concomitant]
     Indication: NAUSEA
  4. COMPAZINE [Concomitant]
     Indication: NAUSEA

REACTIONS (3)
  - Drug dose omission [Unknown]
  - Nausea [Not Recovered/Not Resolved]
  - Product quality issue [Unknown]
